FAERS Safety Report 12670435 (Version 2)
Quarter: 2016Q3

REPORT INFORMATION
  Report Type: Spontaneous
  Country: BR (occurrence: BR)
  Receive Date: 20160822
  Receipt Date: 20160915
  Transmission Date: 20161109
  Serious: Yes (Other)
  Sender: FDA-Public Use
  Company Number: BR-GLAXOSMITHKLINE-BR2016GSK117836

PATIENT
  Sex: Male

DRUGS (12)
  1. DIPYRONE [Concomitant]
     Active Substance: DIPYRONE
     Indication: PAIN
     Dosage: 40 UNK, UNK
     Route: 048
  2. STILNOX (ZOLPIDEM TARTRATE) [Concomitant]
     Indication: SEDATION
     Route: 048
  3. BACTRIM (CO-TRIMOXAZOLE) [Concomitant]
     Indication: URINARY TRACT INFECTION
     Dosage: 1 UNK, QD
     Route: 048
  4. COMBODART [Suspect]
     Active Substance: DUTASTERIDE\TAMSULOSIN
     Indication: PROSTATOMEGALY
     Dosage: 1 UNK, QD
     Route: 048
  5. EPEZ [Concomitant]
     Active Substance: DONEPEZIL HYDROCHLORIDE
     Dosage: 1 DF, QD
     Route: 048
  6. ALOIS [Concomitant]
     Active Substance: MEMANTINE
     Indication: DEMENTIA ALZHEIMER^S TYPE
     Dosage: 2 DF, QD
     Route: 048
  7. OMEPRAZOLE. [Concomitant]
     Active Substance: OMEPRAZOLE
     Dosage: 1 UNK, QD
     Route: 048
  8. STILNOX [Concomitant]
     Active Substance: ZOLPIDEM TARTRATE
     Indication: SEDATION
     Route: 048
  9. RIVOTRIL [Concomitant]
     Active Substance: CLONAZEPAM
     Indication: SEDATION
     Dosage: 1 DF, QD
     Route: 048
  10. CEBRALAT [Concomitant]
     Active Substance: CILOSTAZOL
     Indication: ILL-DEFINED DISORDER
     Dosage: 1 DF, QD
     Route: 048
  11. ASPIRIN. [Concomitant]
     Active Substance: ASPIRIN
     Indication: ILL-DEFINED DISORDER
     Dosage: 1 DF, QD
     Route: 048
  12. RYTMONORM [Concomitant]
     Active Substance: PROPAFENONE
     Indication: DEMENTIA ALZHEIMER^S TYPE
     Dosage: 1 DF, QD
     Route: 048

REACTIONS (4)
  - Contusion [Not Recovered/Not Resolved]
  - Movement disorder [Unknown]
  - Speech disorder [Unknown]
  - Bedridden [Unknown]
